FAERS Safety Report 7668492-2 (Version None)
Quarter: 2011Q3

REPORT INFORMATION
  Report Type: 
  Country: None (occurrence: None)
  Receive Date: 20110808
  Receipt Date: 20110801
  Transmission Date: 20111222
  Serious: Yes (Hospitalization, Other)
  Sender: FDA-Public Use
  Company Number: US-BAYER-2011-069462

PATIENT
  Age: 29 Year
  Weight: 67 kg

DRUGS (7)
  1. OXYCODONE HCL [Concomitant]
     Dosage: UNK
     Dates: start: 20090408
  2. IBUPROFEN [Concomitant]
     Indication: PAIN
     Dosage: UNK
     Dates: start: 20090326, end: 20090408
  3. HYDROCODONE [Concomitant]
     Dosage: UNK
     Dates: start: 20090316
  4. PROMETHAZINE [Concomitant]
     Dosage: UNK
     Dates: start: 20090316
  5. UNCODEABLE ^UNCLASSIFIABLE^ [Concomitant]
     Dosage: UNK
     Dates: start: 20090320
  6. YAZ [Suspect]
     Indication: OVARIAN CYST
     Dosage: UNK
     Dates: start: 20080101, end: 20090701
  7. DARVOCET [Concomitant]
     Indication: PAIN
     Dosage: UNK
     Dates: start: 20090326, end: 20090408

REACTIONS (5)
  - PANCREATIC DISORDER [None]
  - CHOLELITHIASIS [None]
  - BACK PAIN [None]
  - CHEST PAIN [None]
  - PAIN [None]
